FAERS Safety Report 6826536-1 (Version None)
Quarter: 2010Q3

REPORT INFORMATION
  Report Type: 
  Country: None (occurrence: None)
  Receive Date: 20100709
  Receipt Date: 20100630
  Transmission Date: 20110219
  Serious: Yes (Other)
  Sender: FDA-Public Use
  Company Number: PHHY2010BR16379

PATIENT
  Sex: Female

DRUGS (2)
  1. EXELON [Suspect]
     Dosage: UNK
  2. STALEVO 100 [Suspect]

REACTIONS (2)
  - AGITATION [None]
  - HYPERTENSION [None]
